FAERS Safety Report 8019379-7 (Version None)
Quarter: 2012Q1

REPORT INFORMATION
  Report Type: 
  Country: None (occurrence: None)
  Receive Date: 20120103
  Receipt Date: 20111222
  Transmission Date: 20120608
  Serious: Yes (Hospitalization)
  Sender: FDA-Public Use
  Company Number: PHHY2011DE112149

PATIENT
  Age: 31 Year
  Sex: Female

DRUGS (2)
  1. ANTI-THYMOCYTE GLOBULIN RABBIT NOS [Concomitant]
  2. CYCLOSPORINE [Suspect]

REACTIONS (17)
  - DIARRHOEA [None]
  - BLOOD LACTATE DEHYDROGENASE INCREASED [None]
  - GASTROENTERITIS NOROVIRUS [None]
  - SKIN HAEMORRHAGE [None]
  - THROMBOCYTOPENIA [None]
  - MESENTERIC ARTERY THROMBOSIS [None]
  - DUODENAL ULCER PERFORATION [None]
  - ABDOMINAL MASS [None]
  - SKIN LESION [None]
  - C-REACTIVE PROTEIN INCREASED [None]
  - SKIN NECROSIS [None]
  - PAROXYSMAL NOCTURNAL HAEMOGLOBINURIA [None]
  - PANCREATIC DISORDER [None]
  - SEPTIC EMBOLUS [None]
  - INTRAVASCULAR HAEMOLYSIS [None]
  - ABDOMINAL PAIN [None]
  - THROMBOSIS [None]
